FAERS Safety Report 10984070 (Version 3)
Quarter: 2015Q2

REPORT INFORMATION
  Report Type: Report from Study
  Country: US (occurrence: US)
  Receive Date: 20150403
  Receipt Date: 20150611
  Transmission Date: 20150821
  Serious: Yes (Hospitalization, Disabling, Other)
  Sender: FDA-Public Use
  Company Number: US-GILEAD-2015-0146398

PATIENT
  Age: 60 Year
  Sex: Female

DRUGS (2)
  1. RANOLAZINE [Suspect]
     Active Substance: RANOLAZINE
     Indication: ANGINA PECTORIS
     Dosage: 1000 MG, UNK
     Route: 048
  2. RANOLAZINE [Suspect]
     Active Substance: RANOLAZINE
     Dosage: 500 MG, UNK
     Route: 048
     Dates: end: 20150506

REACTIONS (11)
  - Disability [Unknown]
  - Stent placement [Unknown]
  - Diabetic gastroparesis [Unknown]
  - Cardiac disorder [Unknown]
  - Hypotension [Unknown]
  - Back disorder [Unknown]
  - Dizziness [Unknown]
  - Gait disturbance [Unknown]
  - Diabetes mellitus [Unknown]
  - Chromaturia [Unknown]
  - Pain [Unknown]
